FAERS Safety Report 8335088-9 (Version None)
Quarter: 2012Q2

REPORT INFORMATION
  Report Type: 
  Country: None (occurrence: None)
  Receive Date: 20120503
  Receipt Date: 20120418
  Transmission Date: 20120825
  Serious: No
  Sender: FDA-Public Use
  Company Number: US-BAYER-2012-032311

PATIENT
  Age: 57 Year
  Sex: Female
  Weight: 111 kg

DRUGS (6)
  1. IBUPROFEN (ADVIL) [Suspect]
     Indication: ARTHRALGIA
     Dosage: UNK UNK, PRN
     Dates: start: 20090101, end: 20110101
  2. ASPIRIN [Suspect]
     Dosage: 1000MG DAILY AS NEEDED
     Dates: start: 20090101
  3. ACETAMINOPHEN [Suspect]
     Indication: ARTHRALGIA
     Dosage: UNK
     Dates: start: 20090101, end: 20110101
  4. LISINOPRIL [Concomitant]
     Indication: HYPERTENSION
     Dosage: UNK
     Dates: start: 20080101
  5. LIPITOR [Concomitant]
     Indication: BLOOD TRIGLYCERIDES INCREASED
     Dosage: DAILY DOSE 10MG
     Dates: end: 20120311
  6. NAPROXEN SODIUM [Suspect]

REACTIONS (1)
  - ARTHRALGIA [None]
